FAERS Safety Report 9774470 (Version 1)
Quarter: 2013Q4

REPORT INFORMATION
  Report Type: Spontaneous
  Country: US (occurrence: None)
  Receive Date: 20131219
  Receipt Date: 20131219
  Transmission Date: 20140711
  Serious: Yes (Hospitalization)
  Sender: FDA-Public Use
  Company Number: None

PATIENT
  Sex: Male

DRUGS (11)
  1. FORTEO [Suspect]
     Dosage: 600 MCG  MCG/2.4ML
     Route: 058
     Dates: start: 20131103
  2. FORTEO [Suspect]
     Dosage: 600 MCG  MCG/2.4ML
     Route: 058
     Dates: start: 20131103
  3. RISPERIDONE [Concomitant]
  4. ARICEPT [Concomitant]
  5. ASPIRIN [Concomitant]
  6. CALCIUM W/ D [Concomitant]
  7. COUMADIN [Concomitant]
  8. LISINOPRIL [Concomitant]
  9. OMEPRAZOLE [Concomitant]
  10. SIMVASTATIN [Concomitant]
  11. TAMSULOSIN [Concomitant]

REACTIONS (1)
  - Cardiac operation [None]
